FAERS Safety Report 26144896 (Version 1)
Quarter: 2025Q4

REPORT INFORMATION
  Report Type: Spontaneous
  Country: US (occurrence: US)
  Receive Date: 20251211
  Receipt Date: 20251211
  Transmission Date: 20260119
  Serious: Yes (Other)
  Sender: ROCHE
  Company Number: US-ROCHE-10000454107

PATIENT
  Age: 4 Decade
  Sex: Female

DRUGS (5)
  1. MYCOPHENOLATE MOFETIL [Suspect]
     Active Substance: MYCOPHENOLATE MOFETIL
     Indication: Systemic scleroderma
  2. SILDENAFIL [Concomitant]
     Active Substance: SILDENAFIL
  3. NITRIC OXIDE [Concomitant]
     Active Substance: NITRIC OXIDE
     Route: 055
  4. APIXABAN [Concomitant]
     Active Substance: APIXABAN
  5. AMBRISENTAN [Concomitant]
     Active Substance: AMBRISENTAN

REACTIONS (1)
  - Chronic myeloid leukaemia [Unknown]
